FAERS Safety Report 8893289 (Version 1)
Quarter: 2012Q4

REPORT INFORMATION
  Report Type: 
  Country: CH (occurrence: CH)
  Receive Date: 20121108
  Receipt Date: 20121108
  Transmission Date: 20130627
  Serious: Yes (Hospitalization)
  Sender: FDA-Public Use
  Company Number: PHHY2012CH096582

PATIENT
  Sex: Male

DRUGS (1)
  1. EXFORGE HCT [Suspect]
     Indication: HYPERTONIA
     Dosage: 1 DF(160 mg vals, 5 mg amlo, 12.5 mg HCTZ),
     Dates: start: 20121001, end: 20121005

REACTIONS (2)
  - Supraventricular tachycardia [Recovered/Resolved]
  - Fatigue [Recovered/Resolved]
